FAERS Safety Report 5463013-7 (Version None)
Quarter: 2007Q3

REPORT INFORMATION
  Report Type: 
  Country: None (occurrence: None)
  Receive Date: 20070920
  Receipt Date: 20070905
  Transmission Date: 20080115
  Serious: Yes (Death)
  Sender: FDA-Public Use
  Company Number: CN-GENENTECH-247801

PATIENT
  Age: 45 Year
  Sex: Female

DRUGS (1)
  1. HERCEPTIN [Suspect]
     Indication: BREAST CANCER METASTATIC
     Route: 042
     Dates: start: 20070115, end: 20070715

REACTIONS (3)
  - COMA HEPATIC [None]
  - DISEASE PROGRESSION [None]
  - HEPATIC FAILURE [None]
